FAERS Safety Report 9221068 (Version 2)
Quarter: 2013Q2

REPORT INFORMATION
  Report Type: Spontaneous
  Country: US (occurrence: US)
  Receive Date: 20130409
  Receipt Date: 20130416
  Transmission Date: 20140414
  Serious: No
  Sender: FDA-Public Use
  Company Number: US-009507513-1304USA001923

PATIENT
  Sex: Male

DRUGS (2)
  1. NASONEX [Suspect]
     Indication: HYPERSENSITIVITY
     Dosage: 1 - 2 PUFF IN EACH NOSTRIL, QD
     Route: 045
     Dates: start: 201204
  2. NASONEX [Suspect]
     Dosage: 1 - 2 PUFF IN EACH NOSTRIL, QD
     Route: 045
     Dates: start: 201204

REACTIONS (3)
  - Drug dose omission [Unknown]
  - No adverse event [Unknown]
  - Product quality issue [Unknown]
